FAERS Safety Report 8054131-8 (Version None)
Quarter: 2012Q1

REPORT INFORMATION
  Report Type: 
  Country: None (occurrence: None)
  Receive Date: 20120118
  Receipt Date: 20120110
  Transmission Date: 20120608
  Serious: Yes (Hospitalization, Other)
  Sender: FDA-Public Use
  Company Number: DE-JNJFOC-20111200174

PATIENT
  Sex: Female

DRUGS (27)
  1. RISPERDAL [Concomitant]
     Dates: start: 20110629
  2. SEROQUEL [Concomitant]
     Dates: start: 20110604
  3. REBOXETINE [Concomitant]
     Dates: start: 20110802
  4. SEROQUEL [Concomitant]
     Dates: start: 20110619
  5. PALIPERIDONE [Suspect]
     Indication: SCHIZOPHRENIA
     Dates: start: 20110614, end: 20110721
  6. REBOXETINE [Concomitant]
     Indication: DEPRESSION
     Dates: start: 20110708
  7. RISPERDAL [Concomitant]
     Dates: start: 20110607
  8. SOLIAN [Concomitant]
     Indication: PROPHYLAXIS
     Dates: start: 20110518
  9. RISPERDAL [Concomitant]
     Indication: PROPHYLAXIS
     Dates: start: 20110609
  10. REBOXETINE [Concomitant]
     Dates: start: 20110523
  11. RISPERDAL [Concomitant]
     Dates: start: 20110516
  12. RISPERDAL [Concomitant]
     Dates: start: 20110621
  13. SOLIAN [Concomitant]
     Dates: start: 20110516
  14. SEROQUEL [Concomitant]
     Dates: start: 20110804
  15. SEROQUEL [Concomitant]
     Dates: start: 20110805
  16. SEROQUEL [Concomitant]
     Dates: start: 20110603
  17. SEROQUEL [Concomitant]
     Dates: start: 20110601
  18. REBOXETINE [Concomitant]
     Dates: start: 20110720
  19. RISPERDAL [Concomitant]
     Dates: start: 20110606
  20. RISPERDAL [Concomitant]
     Dates: start: 20110608
  21. RISPERDAL [Concomitant]
     Dates: start: 20110617
  22. SOLIAN [Concomitant]
     Dates: start: 20110512
  23. SEROQUEL [Concomitant]
     Indication: SEDATION
     Dates: start: 20110620
  24. RISPERDAL [Concomitant]
     Dates: start: 20110518
  25. RISPERDAL [Concomitant]
     Dates: start: 20110622
  26. SEROQUEL [Concomitant]
     Dates: start: 20110531
  27. REBOXETINE [Concomitant]
     Dates: start: 20110721

REACTIONS (1)
  - SCHIZOPHRENIA [None]
